FAERS Safety Report 8016313-0 (Version None)
Quarter: 2011Q4

REPORT INFORMATION
  Report Type: 
  Country: None (occurrence: None)
  Receive Date: 20111230
  Receipt Date: 20111221
  Transmission Date: 20120403
  Serious: Yes (Other)
  Sender: FDA-Public Use
  Company Number: FR-MERCK-1112FRA00093

PATIENT
  Age: 46 Year
  Sex: Male

DRUGS (5)
  1. TENOFOVIR DISOPROXIL FUMARATE [Suspect]
     Indication: HIV INFECTION
     Route: 048
  2. ETRAVIRINE [Suspect]
     Indication: HIV INFECTION
     Route: 048
  3. ISENTRESS [Suspect]
     Indication: HIV INFECTION
     Route: 048
  4. ISENTRESS [Suspect]
     Route: 048
  5. METHADONE HCL [Suspect]
     Route: 048

REACTIONS (1)
  - OSTEOPOROSIS [None]
